FAERS Safety Report 4394252-4 (Version None)
Quarter: 2004Q3

REPORT INFORMATION
  Report Type: 
  Country: None (occurrence: None)
  Receive Date: 20040707
  Receipt Date: 20040628
  Transmission Date: 20050211
  Serious: Yes (Hospitalization)
  Sender: FDA-Public Use
  Company Number: 2004-117935-NL

PATIENT
  Age: 74 Year
  Sex: Male

DRUGS (5)
  1. MIRTAZAPINE [Suspect]
     Indication: MAJOR DEPRESSION
     Dosage: 30 MG DAILY
  2. MIRTAZAPINE [Suspect]
     Indication: MAJOR DEPRESSION
     Dosage: 45 MG DAILY
  3. LISINOPRIL [Suspect]
     Dosage: 10 MG DAILY
  4. LISINOPRIL [Suspect]
     Dosage: 30 MG DAILY
  5. LISINOPRIL [Suspect]
     Dosage: 30 MG DAILY

REACTIONS (3)
  - ABNORMAL BEHAVIOUR [None]
  - RHABDOMYOLYSIS [None]
  - URINARY TRACT INFECTION [None]
